FAERS Safety Report 5760951-2 (Version None)
Quarter: 2008Q2

REPORT INFORMATION
  Report Type: 
  Country: None (occurrence: None)
  Receive Date: 20080606
  Receipt Date: 20080110
  Transmission Date: 20081010
  Serious: No
  Sender: FDA-Public Use
  Company Number: US-ASTRAZENECA-2008UW00670

PATIENT
  Age: 55 Year
  Sex: Female
  Weight: 63.6 kg

DRUGS (1)
  1. PRILOSEC [Suspect]
     Indication: DYSPEPSIA
     Route: 048
     Dates: start: 20080106, end: 20080108

REACTIONS (2)
  - DIZZINESS [None]
  - PSYCHOMOTOR HYPERACTIVITY [None]
